FAERS Safety Report 24746203 (Version 2)
Quarter: 2024Q4

REPORT INFORMATION
  Report Type: Spontaneous
  Country: US (occurrence: US)
  Receive Date: 20241218
  Receipt Date: 20241231
  Transmission Date: 20250115
  Serious: No
  Sender: ROCHE
  Company Number: US-ROCHE-10000152026

PATIENT
  Age: 28 Year
  Sex: Female

DRUGS (5)
  1. XOLAIR PFS [Suspect]
     Active Substance: OMALIZUMAB
     Indication: Product used for unknown indication
     Route: 065
  2. XOLAIR PFS [Suspect]
     Active Substance: OMALIZUMAB
  3. CLARITIN [Concomitant]
     Active Substance: LORATADINE
  4. PEPCID [Concomitant]
     Active Substance: FAMOTIDINE
  5. KETOTIFEN [Concomitant]
     Active Substance: KETOTIFEN

REACTIONS (3)
  - Device defective [Unknown]
  - Accidental underdose [Unknown]
  - No adverse event [Unknown]
